FAERS Safety Report 7349885-X (Version None)
Quarter: 2011Q1

REPORT INFORMATION
  Report Type: 
  Country: None (occurrence: None)
  Receive Date: 20110309
  Receipt Date: 20110309
  Transmission Date: 20110831
  Serious: No
  Sender: FDA-Public Use
  Company Number: None

PATIENT
  Age: 59 Year
  Sex: Female

DRUGS (2)
  1. LEVAQUIN [Suspect]
     Dates: start: 20090101, end: 20090101
  2. ZITHROMAX [Suspect]
     Dates: start: 20090518, end: 20090523

REACTIONS (3)
  - LIVER INJURY [None]
  - HEPATIC STEATOSIS [None]
  - HEPATIC NECROSIS [None]
